FAERS Safety Report 4443292-5 (Version None)
Quarter: 2004Q3

REPORT INFORMATION
  Report Type: 
  Country: None (occurrence: None)
  Receive Date: 20040907
  Receipt Date: 20040907
  Transmission Date: 20050211
  Serious: No
  Sender: FDA-Public Use
  Company Number: None

PATIENT
  Age: 77 Year
  Sex: Male

DRUGS (2)
  1. LEVAQUIN [Suspect]
  2. TEQUIN [Suspect]

REACTIONS (1)
  - DIARRHOEA [None]
